FAERS Safety Report 15156437 (Version 2)
Quarter: 2018Q3

REPORT INFORMATION
  Report Type: Spontaneous
  Country: US (occurrence: US)
  Receive Date: 20180717
  Receipt Date: 20180820
  Transmission Date: 20181010
  Serious: No
  Sender: FDA-Public Use
  Company Number: US-ACTELION-A-US2018-175483

PATIENT
  Age: 32 Year
  Sex: Female

DRUGS (1)
  1. VALCHLOR [Suspect]
     Active Substance: MECHLORETHAMINE
     Indication: MYCOSIS FUNGOIDES
     Dosage: UNK
     Route: 061
     Dates: start: 20180524

REACTIONS (4)
  - Drug dose omission [Unknown]
  - Erythema [Unknown]
  - Gastrooesophageal reflux disease [Unknown]
  - Pruritus [Unknown]
